FAERS Safety Report 17448265 (Version 2)
Quarter: 2020Q2

REPORT INFORMATION
  Report Type: Spontaneous
  Country: SI (occurrence: SI)
  Receive Date: 20200223
  Receipt Date: 20200427
  Transmission Date: 20200713
  Serious: Yes (Other)
  Sender: FDA-Public Use
  Company Number: NVSC2020SI044164

PATIENT
  Age: 6 Decade
  Sex: Female

DRUGS (10)
  1. DEXAMETHASONE. [Suspect]
     Active Substance: DEXAMETHASONE
     Dosage: 1 OT, QW
     Route: 065
     Dates: start: 2018
  2. DEXAMETHASONE. [Suspect]
     Active Substance: DEXAMETHASONE
     Dosage: UNK
     Route: 065
     Dates: start: 20130115, end: 201305
  3. VELCADE [Suspect]
     Active Substance: BORTEZOMIB
     Dosage: UNK
     Route: 065
     Dates: start: 20130115, end: 201305
  4. DEXAMETHASONE. [Suspect]
     Active Substance: DEXAMETHASONE
     Indication: PLASMA CELL MYELOMA
     Dosage: 40 MG
     Route: 065
     Dates: start: 20121206
  5. DEXAMETHASONE. [Suspect]
     Active Substance: DEXAMETHASONE
     Dosage: 2 OT, QW
     Route: 065
     Dates: start: 201610
  6. DEXAMETHASONE. [Suspect]
     Active Substance: DEXAMETHASONE
     Dosage: 1 OT, QW (1X PER WEEK)
     Route: 065
     Dates: start: 2017
  7. VELCADE [Suspect]
     Active Substance: BORTEZOMIB
     Indication: PLASMA CELL MYELOMA
     Dosage: 1.3 MG/M2
     Route: 065
     Dates: start: 20121206
  8. VELCADE [Suspect]
     Active Substance: BORTEZOMIB
     Dosage: 1 OT, QW (1X PER WEEK)
     Route: 065
     Dates: start: 2017
  9. VELCADE [Suspect]
     Active Substance: BORTEZOMIB
     Dosage: 2 OT, QW
     Route: 065
     Dates: start: 201610
  10. VELCADE [Suspect]
     Active Substance: BORTEZOMIB
     Dosage: 1 OT, QW
     Route: 065
     Dates: start: 2018

REACTIONS (8)
  - Neuralgia [Unknown]
  - Hypogammaglobulinaemia [Unknown]
  - Diarrhoea [Unknown]
  - Plasma cell myeloma [Unknown]
  - Infection [Unknown]
  - Exposure to communicable disease [Unknown]
  - Pancytopenia [Not Recovered/Not Resolved]
  - Hypotension [Unknown]

NARRATIVE: CASE EVENT DATE: 2014
